FAERS Safety Report 6442319-9 (Version None)
Quarter: 2009Q4

REPORT INFORMATION
  Report Type: 
  Country: None (occurrence: None)
  Receive Date: 20091112
  Receipt Date: 20091102
  Transmission Date: 20100525
  Serious: Yes (Death, Other)
  Sender: FDA-Public Use
  Company Number: JHP200900356

PATIENT

DRUGS (1)
  1. COLY-MYCIN M [Suspect]
     Indication: BACTERIAL INFECTION
     Dosage: INTRAVENOUS
     Route: 042

REACTIONS (3)
  - HYPOALBUMINAEMIA [None]
  - NEPHROPATHY TOXIC [None]
  - PNEUMONIA CYTOMEGALOVIRAL [None]
